FAERS Safety Report 8237844-4 (Version None)
Quarter: 2012Q1

REPORT INFORMATION
  Report Type: 
  Country: None (occurrence: None)
  Receive Date: 20120327
  Receipt Date: 20120321
  Transmission Date: 20120608
  Serious: Yes (Other)
  Sender: FDA-Public Use
  Company Number: FR-ASTRAZENECA-2012SE19491

PATIENT
  Age: 950 Month
  Sex: Female
  Weight: 66 kg

DRUGS (2)
  1. IRESSA [Suspect]
     Indication: LUNG NEOPLASM MALIGNANT
     Route: 048
     Dates: start: 20110125
  2. IMODIUM [Concomitant]
     Indication: DIARRHOEA

REACTIONS (1)
  - CYTOLYTIC HEPATITIS [None]
